FAERS Safety Report 10497499 (Version 1)
Quarter: 2014Q4

REPORT INFORMATION
  Report Type: Spontaneous
  Country: CN (occurrence: CN)
  Receive Date: 20141006
  Receipt Date: 20141006
  Transmission Date: 20150528
  Serious: Yes (Other)
  Sender: FDA-Public Use
  Company Number: CN-JNJFOC-20140923124

PATIENT

DRUGS (1)
  1. RISPERIDONE. [Suspect]
     Active Substance: RISPERIDONE
     Indication: SCHIZOPHRENIA
     Route: 048

REACTIONS (5)
  - Arrhythmia [Unknown]
  - Electrocardiogram ST-T change [Unknown]
  - Supraventricular extrasystoles [Unknown]
  - Tachycardia [Unknown]
  - Sinus bradycardia [Unknown]
